FAERS Safety Report 7584836-4 (Version None)
Quarter: 2011Q2

REPORT INFORMATION
  Report Type: 
  Country: None (occurrence: None)
  Receive Date: 20110630
  Receipt Date: 20110628
  Transmission Date: 20111010
  Serious: Yes (Death, Hospitalization, Disabling)
  Sender: FDA-Public Use
  Company Number: PHHY2010US79366

PATIENT
  Sex: Female

DRUGS (1)
  1. FENOFIBRIC ACID [Suspect]
     Dosage: 2.5 MG, QD
     Route: 048

REACTIONS (9)
  - NEOPLASM MALIGNANT [None]
  - CONVULSION [None]
  - MENTAL DISORDER [None]
  - GENERAL PHYSICAL HEALTH DETERIORATION [None]
  - FAILURE TO THRIVE [None]
  - HYPOPHAGIA [None]
  - METASTASES TO CENTRAL NERVOUS SYSTEM [None]
  - NEOPLASM PROGRESSION [None]
  - DYSPHAGIA [None]
